FAERS Safety Report 14660424 (Version 2)
Quarter: 2018Q2

REPORT INFORMATION
  Report Type: Report from Study
  Country: US (occurrence: US)
  Receive Date: 20180320
  Receipt Date: 20180427
  Transmission Date: 20180711
  Serious: Yes (Other)
  Sender: FDA-Public Use
  Company Number: US-BRISTOL-MYERS SQUIBB COMPANY-BMS-2017-091321

PATIENT
  Age: 45 Year
  Sex: Male

DRUGS (1)
  1. NIVOLUMAB [Suspect]
     Active Substance: NIVOLUMAB
     Indication: METASTATIC MALIGNANT MELANOMA
     Route: 065

REACTIONS (15)
  - Faeces discoloured [Recovered/Resolved]
  - Rash [Not Recovered/Not Resolved]
  - Hypoaesthesia [Unknown]
  - Fatigue [Unknown]
  - Arthralgia [Unknown]
  - Diarrhoea [Not Recovered/Not Resolved]
  - Nausea [Recovered/Resolved]
  - Myalgia [Unknown]
  - Abdominal pain [Recovered/Resolved]
  - Skin irritation [Unknown]
  - Cough [Recovered/Resolved]
  - Pain [Unknown]
  - Bronchitis [Recovered/Resolved]
  - Dry skin [Unknown]
  - Acne [Unknown]

NARRATIVE: CASE EVENT DATE: 20160703
